FAERS Safety Report 5481273-3 (Version None)
Quarter: 2007Q4

REPORT INFORMATION
  Report Type: 
  Country: None (occurrence: None)
  Receive Date: 20071005
  Receipt Date: 20071005
  Transmission Date: 20080405
  Serious: Yes (Hospitalization)
  Sender: FDA-Public Use
  Company Number: None

PATIENT
  Age: 35 Year
  Sex: Male

DRUGS (1)
  1. LEXAPRO [Suspect]
     Indication: DEPRESSION
     Dosage: 10MG  BID  PO
     Route: 048
     Dates: start: 20070701, end: 20070807

REACTIONS (3)
  - PRESYNCOPE [None]
  - SEROTONIN SYNDROME [None]
  - SYNCOPE [None]
